FAERS Safety Report 18186332 (Version 1)
Quarter: 2020Q3

REPORT INFORMATION
  Report Type: Spontaneous
  Country: US (occurrence: US)
  Receive Date: 20200821
  Receipt Date: 20200821
  Transmission Date: 20201103
  Serious: Yes (Disabling, Other)
  Sender: FDA-Public Use
  Company Number: None

PATIENT
  Age: 70 Year
  Sex: Male
  Weight: 90.72 kg

DRUGS (5)
  1. LISINOPRIL. [Concomitant]
     Active Substance: LISINOPRIL
  2. METOPROLOL SUCCINATE. [Suspect]
     Active Substance: METOPROLOL SUCCINATE
     Indication: HYPERTENSION
     Dosage: ?          QUANTITY:1 ;?
     Route: 048
     Dates: start: 20190811, end: 20190911
  3. HYDROCHOROT [Concomitant]
  4. AMLODIPINE [Concomitant]
     Active Substance: AMLODIPINE BESYLATE
  5. DOXYCYCLINE. [Concomitant]
     Active Substance: DOXYCYCLINE

REACTIONS (10)
  - Pain [None]
  - Loss of personal independence in daily activities [None]
  - Joint swelling [None]
  - Product tampering [None]
  - Blood pressure increased [None]
  - Pain in extremity [None]
  - Drug ineffective [None]
  - Peripheral swelling [None]
  - Varicose vein [None]
  - Arthralgia [None]

NARRATIVE: CASE EVENT DATE: 20191109
